FAERS Safety Report 11198974 (Version 1)
Quarter: 2015Q2

REPORT INFORMATION
  Report Type: Spontaneous
  Country: US (occurrence: US)
  Receive Date: 20150618
  Receipt Date: 20150618
  Transmission Date: 20150821
  Serious: No
  Sender: FDA-Public Use
  Company Number: US-TEVA-507660USA

PATIENT
  Sex: Female

DRUGS (1)
  1. CIPROFLOXACIN. [Suspect]
     Active Substance: CIPROFLOXACIN
     Indication: LOCALISED INFECTION
     Dates: start: 20140407

REACTIONS (2)
  - Joint crepitation [Not Recovered/Not Resolved]
  - Weight bearing difficulty [Not Recovered/Not Resolved]
